FAERS Safety Report 12274671 (Version 1)
Quarter: 2016Q2

REPORT INFORMATION
  Report Type: Spontaneous
  Country: US (occurrence: US)
  Receive Date: 20160415
  Receipt Date: 20160415
  Transmission Date: 20160815
  Serious: No
  Sender: FDA-Public Use
  Company Number: US-ALLERGAN-1507357US

PATIENT
  Sex: Female
  Weight: 70.3 kg

DRUGS (2)
  1. LATISSE [Suspect]
     Active Substance: BIMATOPROST
     Indication: HYPOTRICHOSIS
     Dosage: 2 GTT, QD
     Route: 061
  2. LEVOTHYROXINE. [Concomitant]
     Active Substance: LEVOTHYROXINE
     Indication: THYROID DISORDER
     Dosage: 75 ?G, UNK

REACTIONS (5)
  - Product quality issue [None]
  - Therapeutic response delayed [Unknown]
  - Product container issue [Unknown]
  - Application site discomfort [Unknown]
  - Liquid product physical issue [Unknown]
